FAERS Safety Report 23227764 (Version 2)
Quarter: 2023Q4

REPORT INFORMATION
  Report Type: Spontaneous
  Country: CA (occurrence: None)
  Receive Date: 20231125
  Receipt Date: 20231209
  Transmission Date: 20240109
  Serious: Yes (Other)
  Sender: FDA-Public Use
  Company Number: CA-ROCHE-3460282

PATIENT
  Age: 64 Year
  Sex: Female

DRUGS (2)
  1. ALECTINIB [Suspect]
     Active Substance: ALECTINIB
     Indication: Lung cancer metastatic
     Route: 065
     Dates: start: 202004, end: 202307
  2. LORBRENA [Suspect]
     Active Substance: LORLATINIB
     Indication: Lung cancer metastatic
     Route: 048
     Dates: start: 20230801

REACTIONS (3)
  - Disease progression [Unknown]
  - Dyslipidaemia [Recovered/Resolved]
  - Constipation [Unknown]
